FAERS Safety Report 11637409 (Version 1)
Quarter: 2015Q4

REPORT INFORMATION
  Report Type: Report from Study
  Country: PT (occurrence: PT)
  Receive Date: 20151016
  Receipt Date: 20151016
  Transmission Date: 20160304
  Serious: Yes (Disabling)
  Sender: FDA-Public Use
  Company Number: PT-GILEAD-2015-0176625

PATIENT
  Age: 72 Year
  Sex: Female

DRUGS (1)
  1. SOFOSBUVIR [Suspect]
     Active Substance: SOFOSBUVIR
     Indication: HEPATITIS C
     Dosage: UNK
     Route: 065
     Dates: start: 20150304, end: 20150324

REACTIONS (3)
  - Vomiting [Unknown]
  - Influenza like illness [Unknown]
  - Myalgia [Unknown]

NARRATIVE: CASE EVENT DATE: 201503
